FAERS Safety Report 15724490 (Version 1)
Quarter: 2018Q4

REPORT INFORMATION
  Report Type: Spontaneous
  Country: JP (occurrence: JP)
  Receive Date: 20181214
  Receipt Date: 20181214
  Transmission Date: 20190205
  Serious: Yes (Hospitalization, Other)
  Sender: FDA-Public Use
  Company Number: JP-MYLANLABS-2018M1091743

PATIENT
  Age: 64 Year
  Sex: Male

DRUGS (1)
  1. PREDNISOLONE. [Suspect]
     Active Substance: PREDNISOLONE
     Indication: CRONKHITE-CANADA SYNDROME
     Dosage: 1 MG/KG/DAY
     Route: 065

REACTIONS (7)
  - Sepsis [Recovered/Resolved]
  - Disseminated intravascular coagulation [Recovered/Resolved]
  - Gastrointestinal infection [Recovered/Resolved]
  - Escherichia infection [Recovered/Resolved]
  - Dermatitis [Unknown]
  - Septic shock [Recovered/Resolved]
  - Bacterial translocation [Recovered/Resolved]
